FAERS Safety Report 18840313 (Version 1)
Quarter: 2021Q1

REPORT INFORMATION
  Report Type: Spontaneous
  Country: US (occurrence: US)
  Receive Date: 20210203
  Receipt Date: 20210203
  Transmission Date: 20210419
  Serious: Yes (Other)
  Sender: FDA-Public Use
  Company Number: US-PRAGMA-2020-US-026412

PATIENT
  Age: 36 Year
  Sex: Female
  Weight: 74.84 kg

DRUGS (1)
  1. KEFLEX [Suspect]
     Active Substance: CEPHALEXIN
     Indication: TOOTH ABSCESS
     Dosage: AS PRESCRIBED BY DENTIST
     Route: 048
     Dates: start: 1998, end: 1998

REACTIONS (2)
  - Drug hypersensitivity [Recovered/Resolved]
  - Anaphylactic reaction [Unknown]

NARRATIVE: CASE EVENT DATE: 1998
